FAERS Safety Report 7962913-3 (Version None)
Quarter: 2011Q4

REPORT INFORMATION
  Report Type: 
  Country: None (occurrence: None)
  Receive Date: 20111207
  Receipt Date: 20111130
  Transmission Date: 20120403
  Serious: Yes (Congenital Anomaly, Other)
  Sender: FDA-Public Use
  Company Number: US-ABBOTT-11P-163-0879133-00

PATIENT
  Sex: Male

DRUGS (1)
  1. DEPAKOTE [Suspect]
     Indication: MATERNAL EXPOSURE TIMING UNSPECIFIED
     Route: 064

REACTIONS (13)
  - SPINA BIFIDA [None]
  - IMPAIRED WORK ABILITY [None]
  - INJURY [None]
  - EMOTIONAL DISTRESS [None]
  - DEFORMITY [None]
  - CONGENITAL ANOMALY [None]
  - ANHEDONIA [None]
  - CONGENITAL CARDIOVASCULAR ANOMALY [None]
  - FOETAL EXPOSURE DURING PREGNANCY [None]
  - PAIN [None]
  - NEURAL TUBE DEFECT [None]
  - QUALITY OF LIFE DECREASED [None]
  - PHYSICAL DISABILITY [None]
